FAERS Safety Report 11238557 (Version 1)
Quarter: 2015Q3

REPORT INFORMATION
  Report Type: Spontaneous
  Country: JP (occurrence: JP)
  Receive Date: 20150705
  Receipt Date: 20150705
  Transmission Date: 20151125
  Serious: Yes (Death, Other)
  Sender: FDA-Public Use
  Company Number: JP-CIPLA LTD.-2015JP05500

PATIENT

DRUGS (11)
  1. DAUNORUBICIN [Suspect]
     Active Substance: DAUNORUBICIN
     Dosage: 50 MG/M2, QD, FOR 3 DAYS
     Route: 065
  2. CYTOSINE ARABINOSIDE [Suspect]
     Active Substance: CYTARABINE
     Dosage: 100 MG/M2, QD, FOR 7 DAYS
     Route: 065
  3. DORIPENEM [Suspect]
     Active Substance: DORIPENEM
     Indication: PYREXIA
     Dosage: 500 MG EVERY 6 H
     Route: 065
  4. VANCOMYCIN [Suspect]
     Active Substance: VANCOMYCIN
     Indication: PYREXIA
     Dosage: 1 G EVERY EVERY 12 HR
     Route: 065
  5. CEFEPIME [Suspect]
     Active Substance: CEFEPIME HYDROCHLORIDE
     Indication: PYREXIA
     Dosage: 1 G EVERY 8 H
     Route: 065
  6. AMPHOTERICIN B. [Suspect]
     Active Substance: AMPHOTERICIN B
     Indication: FUNGAL INFECTION
     Dosage: 5 MG/KG, EVERY 24 HOUR
     Route: 065
  7. FILGRASTIM [Suspect]
     Active Substance: FILGRASTIM
     Indication: NEUTROPENIA
     Dosage: 300 MICRONL/DAY
     Route: 065
  8. TERBINAFINE. [Suspect]
     Active Substance: TERBINAFINE
     Indication: ANTIFUNGAL PROPHYLAXIS
     Dosage: 250 MG, EVERY 12 HOURS
     Route: 065
  9. FLUCONAZOLE. [Suspect]
     Active Substance: FLUCONAZOLE
     Indication: ANTIFUNGAL PROPHYLAXIS
     Dosage: 200 MG, QD
     Route: 065
  10. VORICONAZOLE. [Suspect]
     Active Substance: VORICONAZOLE
     Indication: FUNGAL INFECTION
     Dosage: 6 MG/KG EVERY 12 H FOR THE FIRST 24 H AND THEN 4 MG/KG EVERY 12 H THEREAFTER
     Route: 065
  11. VORICONAZOLE. [Suspect]
     Active Substance: VORICONAZOLE
     Dosage: MG/KG EVERY 12 H THEREAFTER

REACTIONS (11)
  - Febrile neutropenia [Unknown]
  - Pulmonary mass [Unknown]
  - Aplasia [Unknown]
  - Sinusitis [Unknown]
  - Hemiplegia [Unknown]
  - Multi-organ failure [Fatal]
  - Splenic lesion [Unknown]
  - Pneumonia [Unknown]
  - Sinus node dysfunction [Unknown]
  - Cardiac arrest [Unknown]
  - Bone marrow failure [Unknown]
